FAERS Safety Report 23800828 (Version 1)
Quarter: 2024Q2

REPORT INFORMATION
  Report Type: Spontaneous
  Country: US (occurrence: None)
  Receive Date: 20240429
  Receipt Date: 20240429
  Transmission Date: 20240716
  Serious: Yes (Disabling)
  Sender: FDA-Public Use
  Company Number: None

PATIENT
  Age: 51 Year
  Sex: Female
  Weight: 75.6 kg

DRUGS (7)
  1. ADO-TRASTUZUMAB EMTANSINE [Suspect]
     Active Substance: ADO-TRASTUZUMAB EMTANSINE
     Indication: HER2 positive breast cancer
     Route: 042
  2. NP THYROID [Concomitant]
     Active Substance: LEVOTHYROXINE\LIOTHYRONINE
  3. CARVEDILOL [Concomitant]
     Active Substance: CARVEDILOL
  4. MULTI [Concomitant]
  5. VITAMINS D [Concomitant]
  6. PYRIDOXINE HYDROCHLORIDE [Concomitant]
     Active Substance: PYRIDOXINE HYDROCHLORIDE
  7. SUPER BEETS [Concomitant]

REACTIONS (3)
  - Injury corneal [None]
  - Impaired driving ability [None]
  - Visual impairment [None]

NARRATIVE: CASE EVENT DATE: 20240401
